FAERS Safety Report 13989129 (Version 1)
Quarter: 2017Q3

REPORT INFORMATION
  Report Type: Spontaneous
  Country: US (occurrence: US)
  Receive Date: 20170920
  Receipt Date: 20170920
  Transmission Date: 20171128
  Serious: Yes (Other)
  Sender: FDA-Public Use
  Company Number: US-AMGEN-USASP2017139178

PATIENT
  Sex: Female

DRUGS (1)
  1. PROLIA [Suspect]
     Active Substance: DENOSUMAB
     Indication: PRODUCT USED FOR UNKNOWN INDICATION
     Dosage: UNK
     Route: 065
     Dates: start: 2015

REACTIONS (13)
  - Pneumonia [Unknown]
  - Back pain [Not Recovered/Not Resolved]
  - Insomnia [Unknown]
  - Fall [Unknown]
  - Gastrointestinal infection [Unknown]
  - Sinusitis [Unknown]
  - Quality of life decreased [Unknown]
  - Respiratory tract infection [Unknown]
  - Wrist fracture [Unknown]
  - Bronchitis [Unknown]
  - Blood cholesterol increased [Unknown]
  - Myalgia [Unknown]
  - Immune system disorder [Unknown]
